FAERS Safety Report 10021490 (Version 2)
Quarter: 2015Q1

REPORT INFORMATION
  Report Type: Spontaneous
  Country: SE (occurrence: SE)
  Receive Date: 20140319
  Receipt Date: 20150306
  Transmission Date: 20150720
  Serious: Yes (Other)
  Sender: FDA-Public Use
  Company Number: SE-ABBVIE-14P-150-1213953-00

PATIENT
  Age: 75 Year
  Sex: Male

DRUGS (1)
  1. ERGENYL [Suspect]
     Active Substance: VALPROIC ACID
     Indication: EPILEPSY
     Route: 065
     Dates: start: 2007, end: 20140213

REACTIONS (3)
  - Memory impairment [Not Recovered/Not Resolved]
  - Asterixis [Recovered/Resolved]
  - Gait disturbance [Not Recovered/Not Resolved]

NARRATIVE: CASE EVENT DATE: 2012
